FAERS Safety Report 20050306 (Version 2)
Quarter: 2022Q1

REPORT INFORMATION
  Report Type: Spontaneous
  Country: US (occurrence: US)
  Receive Date: 20211109
  Receipt Date: 20220202
  Transmission Date: 20220423
  Serious: Yes (Hospitalization, Other)
  Sender: FDA-Public Use
  Company Number: US-BAYER-2021A245479

PATIENT
  Age: 56 Year
  Sex: Female

DRUGS (15)
  1. GADAVIST [Suspect]
     Active Substance: GADOBUTROL
     Indication: Magnetic resonance imaging head
     Dosage: UNK UNK, ONCE
     Route: 042
     Dates: start: 20211104, end: 20211104
  2. GADAVIST [Suspect]
     Active Substance: GADOBUTROL
     Indication: Headache
  3. GADAVIST [Suspect]
     Active Substance: GADOBUTROL
     Indication: Paraesthesia
  4. GADAVIST [Suspect]
     Active Substance: GADOBUTROL
     Indication: Migraine
  5. GADAVIST [Suspect]
     Active Substance: GADOBUTROL
     Indication: Dyskinesia
  6. GADAVIST [Suspect]
     Active Substance: GADOBUTROL
     Indication: Seizure
  7. TOPAMAX [Concomitant]
     Active Substance: TOPIRAMATE
     Dosage: UNK
  8. AMITRIPTYLINE [Concomitant]
     Active Substance: AMITRIPTYLINE
     Dosage: UNK
  9. GABAPENTIN [Concomitant]
     Active Substance: GABAPENTIN
     Dosage: UNK
  10. ESTROGENS [Concomitant]
     Active Substance: ESTROGENS
     Dosage: UNK
  11. METFORMIN [Concomitant]
     Active Substance: METFORMIN HYDROCHLORIDE
     Dosage: UNK
  12. METOPROLOLTARTRAT [Concomitant]
     Dosage: UNK
  13. OLMESARTAN HYDROCHLOROTHIAZIDE ROWEX [Concomitant]
     Dosage: UNK
  14. PANTOPRAZOLE [Concomitant]
     Active Substance: PANTOPRAZOLE
     Dosage: UNK
  15. VITAMINS NOS [Concomitant]
     Active Substance: VITAMINS
     Dosage: UNK

REACTIONS (5)
  - Anaphylactic reaction [Recovered/Resolved]
  - Cough [Recovered/Resolved]
  - Wheezing [Recovered/Resolved]
  - Dyspnoea [Recovered/Resolved]
  - Tachycardia [Recovered/Resolved]

NARRATIVE: CASE EVENT DATE: 20211104
